FAERS Safety Report 11281536 (Version 1)
Quarter: 2015Q3

REPORT INFORMATION
  Report Type: Report from Study
  Country: US (occurrence: US)
  Receive Date: 20150717
  Receipt Date: 20150717
  Transmission Date: 20151125
  Serious: No
  Sender: FDA-Public Use
  Company Number: US-CELGENEUS-USA-2015065751

PATIENT
  Age: 41 Year
  Sex: Male

DRUGS (2)
  1. VINBLASTINE [Concomitant]
     Active Substance: VINBLASTINE
     Indication: RENAL CANCER STAGE IV
     Route: 065
  2. THALOMID [Suspect]
     Active Substance: THALIDOMIDE
     Indication: RENAL CANCER STAGE IV
     Dosage: 100 MILLIGRAM
     Route: 048

REACTIONS (1)
  - Adverse drug reaction [Unknown]
